FAERS Safety Report 4333209-6 (Version None)
Quarter: 2004Q1

REPORT INFORMATION
  Report Type: 
  Country: None (occurrence: None)
  Receive Date: 20040330
  Receipt Date: 20040319
  Transmission Date: 20041129
  Serious: Yes (Hospitalization)
  Sender: FDA-Public Use
  Company Number: MK200403-0194-1

PATIENT
  Age: 35 Year
  Sex: Male

DRUGS (5)
  1. ANAFRANIL [Suspect]
     Indication: DEPRESSION
     Dosage: 150MG
     Dates: start: 20031216, end: 20040111
  2. DEPAMIDE [Concomitant]
  3. NOXINAN [Concomitant]
  4. LEPTICUR [Concomitant]
  5. TRANXENE [Concomitant]

REACTIONS (5)
  - ANXIETY [None]
  - CONFUSIONAL STATE [None]
  - DYSARTHRIA [None]
  - DYSURIA [None]
  - EXTRAPYRAMIDAL DISORDER [None]
